FAERS Safety Report 17963943 (Version 1)
Quarter: 2020Q2

REPORT INFORMATION
  Report Type: Spontaneous
  Country: PL (occurrence: PL)
  Receive Date: 20200630
  Receipt Date: 20200630
  Transmission Date: 20200714
  Serious: Yes (Other)
  Sender: FDA-Public Use
  Company Number: PL-JNJFOC-20200633499

PATIENT
  Age: 9 Decade
  Sex: Male

DRUGS (1)
  1. ZYTIGA [Suspect]
     Active Substance: ABIRATERONE ACETATE
     Indication: PROSTATE CANCER METASTATIC
     Route: 048
     Dates: start: 201812, end: 201910

REACTIONS (4)
  - Prostatic specific antigen increased [Recovered/Resolved]
  - Renal failure [Unknown]
  - Anaemia [Recovered/Resolved]
  - Bone cancer metastatic [Unknown]

NARRATIVE: CASE EVENT DATE: 201812
